FAERS Safety Report 7904438-7 (Version None)
Quarter: 2011Q4

REPORT INFORMATION
  Report Type: 
  Country: None (occurrence: None)
  Receive Date: 20111109
  Receipt Date: 20111101
  Transmission Date: 20120403
  Serious: Yes (Other)
  Sender: FDA-Public Use
  Company Number: US-PFIZER INC-2011267709

PATIENT
  Sex: Female

DRUGS (2)
  1. ACETYLSALICYLIC ACID [Concomitant]
     Indication: CARDIAC DISORDER
     Dosage: UNK
  2. ZYVOX [Suspect]
     Indication: STAPHYLOCOCCAL INFECTION
     Dosage: 600 MG, UNK
     Dates: start: 20111012, end: 20111028

REACTIONS (3)
  - SPEECH DISORDER [None]
  - EYE EXCISION [None]
  - MOVEMENT DISORDER [None]
